FAERS Safety Report 8239795-8 (Version None)
Quarter: 2012Q1

REPORT INFORMATION
  Report Type: 
  Country: None (occurrence: None)
  Receive Date: 20120328
  Receipt Date: 20120315
  Transmission Date: 20120608
  Serious: Yes (Other)
  Sender: FDA-Public Use
  Company Number: PHHY2011CA13914

PATIENT
  Sex: Male

DRUGS (9)
  1. LAXATIVES [Concomitant]
     Dosage: UNK
  2. HYDROCHLOROTHIAZIDE [Concomitant]
     Indication: BLOOD PRESSURE ABNORMAL
  3. SANDOSTATIN LAR [Suspect]
     Dosage: 30 MG, EVERY 2 WEEKS
     Route: 030
  4. SANDOSTATIN LAR [Suspect]
     Dosage: 30 MG, EVERY 4 WEEKS
  5. ATENOLOL [Concomitant]
     Indication: BLOOD PRESSURE ABNORMAL
     Dates: start: 20110301
  6. SANDOSTATIN LAR [Suspect]
     Indication: NEUROENDOCRINE CARCINOMA
     Dosage: 30 MG, QMO
     Route: 030
     Dates: start: 20110120
  7. SANDOSTATIN LAR [Suspect]
     Dosage: 30 MG EVERY 4 WEEKS
     Route: 030
  8. NIACIN [Concomitant]
  9. NORVASC [Concomitant]
     Indication: BLOOD PRESSURE ABNORMAL

REACTIONS (22)
  - INFLUENZA LIKE ILLNESS [None]
  - HYPOTENSION [None]
  - URINE ANALYSIS ABNORMAL [None]
  - RASH [None]
  - BLOOD PRESSURE INCREASED [None]
  - ARTHRALGIA [None]
  - ANXIETY [None]
  - BACK PAIN [None]
  - PALPITATIONS [None]
  - HEART RATE IRREGULAR [None]
  - FATIGUE [None]
  - DYSPEPSIA [None]
  - OEDEMA PERIPHERAL [None]
  - RASH PRURITIC [None]
  - HEART RATE DECREASED [None]
  - PAIN [None]
  - GASTROOESOPHAGEAL REFLUX DISEASE [None]
  - MUSCULOSKELETAL STIFFNESS [None]
  - TACHYCARDIA [None]
  - BLOOD PRESSURE FLUCTUATION [None]
  - THROAT TIGHTNESS [None]
  - DIARRHOEA [None]
